FAERS Safety Report 16523173 (Version 1)
Quarter: 2019Q3

REPORT INFORMATION
  Report Type: Spontaneous
  Country: US (occurrence: US)
  Receive Date: 20190703
  Receipt Date: 20190703
  Transmission Date: 20191004
  Serious: Yes (Hospitalization, Other)
  Sender: FDA-Public Use
  Company Number: US-MTPC-MTDA2019-0058406

PATIENT

DRUGS (1)
  1. RADICAVA [Suspect]
     Active Substance: EDARAVONE
     Indication: AMYOTROPHIC LATERAL SCLEROSIS
     Dosage: 60 MILLIGRAM, QD FOR 10 OUT OF 14 DAYS, THEN OFF FOR 14 DAYS
     Route: 042

REACTIONS (3)
  - Fall [Unknown]
  - Balance disorder [Unknown]
  - Femur fracture [Unknown]

NARRATIVE: CASE EVENT DATE: 20190624
